FAERS Safety Report 16332657 (Version 1)
Quarter: 2019Q2

REPORT INFORMATION
  Report Type: Spontaneous
  Country: US (occurrence: US)
  Receive Date: 20190414
  Receipt Date: 20190414
  Transmission Date: 20190711
  Serious: No
  Sender: FDA-Public Use
  Company Number: None

PATIENT
  Age: 67 Year
  Sex: Female

DRUGS (1)
  1. METHOTREXATE 2.5MG TAB [Suspect]
     Active Substance: METHOTREXATE

REACTIONS (3)
  - Thrombosis [None]
  - Pulmonary embolism [None]
  - Intracardiac thrombus [None]

NARRATIVE: CASE EVENT DATE: 20190414
